FAERS Safety Report 11369268 (Version 1)
Quarter: 2015Q3

REPORT INFORMATION
  Report Type: Spontaneous
  Country: US (occurrence: US)
  Receive Date: 20150812
  Receipt Date: 20150812
  Transmission Date: 20151125
  Serious: No
  Sender: FDA-Public Use
  Company Number: US-JNJFOC-20150601808

PATIENT
  Sex: Female
  Weight: 71 kg

DRUGS (1)
  1. STELARA [Suspect]
     Active Substance: USTEKINUMAB
     Indication: CROHN^S DISEASE
     Route: 058
     Dates: start: 2012, end: 201210

REACTIONS (3)
  - Rubber sensitivity [Unknown]
  - Rash [Unknown]
  - Product use issue [Unknown]

NARRATIVE: CASE EVENT DATE: 2012
